FAERS Safety Report 9502736 (Version 1)
Quarter: 2013Q3

REPORT INFORMATION
  Report Type: Spontaneous
  Country: IT (occurrence: IT)
  Receive Date: 20130906
  Receipt Date: 20130906
  Transmission Date: 20140515
  Serious: Yes (Hospitalization, Other)
  Sender: FDA-Public Use
  Company Number: IT-MYLANLABS-2013S1019288

PATIENT
  Age: 35 Year
  Sex: Female

DRUGS (7)
  1. LORAZEPAM [Suspect]
     Route: 048
     Dates: start: 20130703, end: 20130703
  2. CIPROFLOXACIN [Suspect]
     Route: 048
     Dates: start: 20130703, end: 20130703
  3. SODIUM VALPROATE [Suspect]
     Route: 048
     Dates: start: 20130703, end: 20130703
  4. DALMADORM [Suspect]
     Dates: start: 20130703, end: 20130703
  5. SEROQUEL [Concomitant]
     Indication: PRODUCT USED FOR UNKNOWN INDICATION
  6. FLUNOX [Concomitant]
     Indication: PRODUCT USED FOR UNKNOWN INDICATION
  7. DIAZEPAM [Concomitant]
     Indication: PRODUCT USED FOR UNKNOWN INDICATION

REACTIONS (5)
  - Sopor [Not Recovered/Not Resolved]
  - Drug abuse [Not Recovered/Not Resolved]
  - Hyperammonaemia [Not Recovered/Not Resolved]
  - Suicide attempt [Not Recovered/Not Resolved]
  - Intentional self-injury [Not Recovered/Not Resolved]
